FAERS Safety Report 5758011-X (Version None)
Quarter: 2008Q2

REPORT INFORMATION
  Report Type: 
  Country: None (occurrence: None)
  Receive Date: 20080602
  Receipt Date: 20080602
  Transmission Date: 20081010
  Serious: Yes (Life-Threatening, Hospitalization, Disabling)
  Sender: FDA-Public Use
  Company Number: None

PATIENT
  Age: 80 Year
  Sex: Female
  Weight: 49.8957 kg

DRUGS (1)
  1. DIGITEK .25 ACTIVIS [Suspect]
     Indication: CARDIAC DISORDER
     Dosage: 1 DAILY

REACTIONS (2)
  - CARDIOVASCULAR DISORDER [None]
  - HEART RATE DECREASED [None]
